FAERS Safety Report 5651843-8 (Version None)
Quarter: 2008Q1

REPORT INFORMATION
  Report Type: 
  Country: None (occurrence: None)
  Receive Date: 20080304
  Receipt Date: 20080220
  Transmission Date: 20080703
  Serious: Yes (Death)
  Sender: FDA-Public Use
  Company Number: 07-001315

PATIENT

DRUGS (1)
  1. FEMCON FE [Suspect]
     Dosage: 0.4MG/35MCG, TRANSPLACENTAL
     Route: 064
     Dates: end: 20070611

REACTIONS (2)
  - DRUG EXPOSURE DURING PREGNANCY [None]
  - INTRA-UTERINE DEATH [None]
